FAERS Safety Report 19002711 (Version 2)
Quarter: 2021Q2

REPORT INFORMATION
  Report Type: Report from Study
  Country: US (occurrence: US)
  Receive Date: 20210312
  Receipt Date: 20210407
  Transmission Date: 20210717
  Serious: No
  Sender: FDA-Public Use
  Company Number: NVSC2021US056710

PATIENT
  Age: 43 Year
  Sex: Male

DRUGS (2)
  1. ENTRESTO [Suspect]
     Active Substance: SACUBITRIL\VALSARTAN
     Indication: PRODUCT USED FOR UNKNOWN INDICATION
     Dosage: 200 MG, BID (97/103 MG)
     Route: 048
     Dates: start: 202009
  2. ENTRESTO [Suspect]
     Active Substance: SACUBITRIL\VALSARTAN
     Dosage: 200 MG, BID (97/103 MG), ABOUT A WEEK AGO HIS ENTRESTO WAS RESTARTED
     Route: 065

REACTIONS (2)
  - Inappropriate schedule of product administration [Unknown]
  - Renal disorder [Unknown]

NARRATIVE: CASE EVENT DATE: 20210302
